FAERS Safety Report 12294535 (Version 1)
Quarter: 2016Q2

REPORT INFORMATION
  Report Type: Spontaneous
  Country: IE (occurrence: IE)
  Receive Date: 20160422
  Receipt Date: 20160422
  Transmission Date: 20160815
  Serious: Yes (Death)
  Sender: FDA-Public Use
  Company Number: IE-ROCHE-1735222

PATIENT
  Age: 50 Year
  Sex: Male
  Weight: 70.4 kg

DRUGS (24)
  1. ZANTAC [Suspect]
     Active Substance: RANITIDINE HYDROCHLORIDE
     Indication: PROPHYLAXIS AGAINST GASTROINTESTINAL ULCER
     Route: 042
     Dates: start: 20151226, end: 20160108
  2. PIRITON [Concomitant]
     Active Substance: CHLORPHENIRAMINE MALEATE
     Indication: PRURITUS
     Route: 065
  3. FOLINIC ACID [Concomitant]
     Active Substance: LEUCOVORIN
     Route: 065
     Dates: start: 20160105, end: 20160108
  4. GALFER [Concomitant]
     Active Substance: IRON
     Indication: IRON DEFICIENCY
     Route: 065
  5. BETNOVATE CREAM (0.1%) [Concomitant]
     Indication: RASH
     Dosage: APPLIED SPARINGLY
     Route: 061
  6. CLONIDINE. [Concomitant]
     Active Substance: CLONIDINE
     Route: 065
     Dates: start: 20160105, end: 20160108
  7. NORVIR [Suspect]
     Active Substance: RITONAVIR
     Indication: HIV INFECTION
     Route: 048
     Dates: start: 20151103, end: 20151224
  8. NOVORAPID [Concomitant]
     Active Substance: INSULIN ASPART
     Indication: DIABETES MELLITUS
     Dosage: AS PER SCALE
     Route: 065
  9. SENOKOT [Concomitant]
     Active Substance: SENNOSIDES
     Indication: GASTROINTESTINAL MOTILITY DISORDER
     Dosage: NOCTE
     Route: 065
     Dates: start: 20151226, end: 20160108
  10. SOLU-MEDRONE [Concomitant]
     Active Substance: METHYLPREDNISOLONE SODIUM SUCCINATE
     Dosage: POWDER AND SOLVENT FOR SOLUTION FOR INJECTION
     Route: 065
     Dates: start: 20160105, end: 20160108
  11. ARCOXIA [Suspect]
     Active Substance: ETORICOXIB
     Indication: ARTHRALGIA
     Route: 048
     Dates: start: 20151117, end: 20151201
  12. TRUVADA [Concomitant]
     Active Substance: EMTRICITABINE\TENOFOVIR DISOPROXIL FUMARATE
     Indication: HIV INFECTION
     Dosage: 245MG/200MG
     Route: 065
  13. LANTUS [Concomitant]
     Active Substance: INSULIN GLARGINE
     Indication: DIABETES MELLITUS
     Route: 065
  14. LANSOPRAZOLE. [Concomitant]
     Active Substance: LANSOPRAZOLE
     Indication: PROPHYLAXIS AGAINST GASTROINTESTINAL ULCER
     Dosage: GASTRO RESISTANT CAPSULE
     Route: 065
     Dates: start: 20151224, end: 20151226
  15. MEROPENEM. [Concomitant]
     Active Substance: MEROPENEM
     Indication: INFECTION
     Dosage: POWDER FOR SOLUTION FOR INJECTION OF INFUSION
     Route: 065
     Dates: start: 20160101, end: 20160108
  16. COPEGUS [Suspect]
     Active Substance: RIBAVIRIN
     Indication: HEPATITIS C
     Route: 048
     Dates: start: 20150811, end: 20151201
  17. PREZISTA [Suspect]
     Active Substance: DARUNAVIR ETHANOLATE
     Indication: HIV INFECTION
     Route: 048
     Dates: start: 20151103, end: 20151201
  18. ECALTA [Concomitant]
     Active Substance: ANIDULAFUNGIN
     Indication: INFECTION
     Route: 065
     Dates: start: 20160105, end: 20160108
  19. ISENTRESS [Concomitant]
     Active Substance: RALTEGRAVIR POTASSIUM
     Indication: HIV INFECTION
     Route: 065
  20. HARVONI [Suspect]
     Active Substance: LEDIPASVIR\SOFOSBUVIR
     Indication: HEPATITIS C
     Dosage: 400MG/9
     Route: 048
     Dates: start: 20150811, end: 20151224
  21. LAXOSE [Concomitant]
     Indication: GASTROINTESTINAL MOTILITY DISORDER
     Route: 065
     Dates: start: 20151226, end: 20160108
  22. VANCOMYCIN HYDROCHLORIDE. [Concomitant]
     Active Substance: VANCOMYCIN HYDROCHLORIDE
     Indication: INFECTION
     Dosage: POWDER FOR CONCEN FOR SOLUTION FOR INFUSION
     Route: 065
     Dates: start: 20160101, end: 20160108
  23. FENTANYL. [Concomitant]
     Active Substance: FENTANYL
     Indication: PAIN
     Route: 065
     Dates: start: 20160105, end: 20160108
  24. GLYCOPYRRONIUM BROMIDE [Concomitant]
     Active Substance: GLYCOPYRRONIUM
     Indication: SECRETION DISCHARGE
     Dosage: 200-600
     Route: 065
     Dates: start: 20160105, end: 20160108

REACTIONS (3)
  - Hypersensitivity [Fatal]
  - Immune thrombocytopenic purpura [Fatal]
  - Gastrointestinal haemorrhage [Fatal]

NARRATIVE: CASE EVENT DATE: 20151201
